FAERS Safety Report 8500636-2 (Version None)
Quarter: 2012Q3

REPORT INFORMATION
  Report Type: 
  Country: None (occurrence: None)
  Receive Date: 20120710
  Receipt Date: 20120705
  Transmission Date: 20120928
  Serious: Yes (Disabling)
  Sender: FDA-Public Use
  Company Number: CA-ROCHE-1084269

PATIENT
  Sex: Female

DRUGS (5)
  1. PREDNISOLONE [Suspect]
     Indication: DIFFUSE LARGE B-CELL LYMPHOMA
     Dosage: DOSE OF LAST DRUG TAKEN:100MG, DATE OF RECENT DOSE TAKEN PRIOR TO ONSET OF AE:17/JUN/2012
     Route: 048
     Dates: start: 20120410
  2. CYCLOPHOSPHAMIDE [Suspect]
     Indication: DIFFUSE LARGE B-CELL LYMPHOMA
     Dosage: DOSE OF LAST DRUG TAKEN:1370MG, DATE OF LAST DOSE TAKEN PRIOR TO ONSET OF AE:13/JUN/2012
     Route: 042
     Dates: start: 20120410
  3. VINCRISTINE SULFATE [Suspect]
     Indication: DIFFUSE LARGE B-CELL LYMPHOMA
     Dosage: ROUTE:INTRAVENOUS PUSH, DOSE OF LAST DRUG TAKEN:2MG, DATE OF LAST DOSE TAKEN PRIOR TO ONSET OF AE:13
     Route: 042
     Dates: start: 20120410
  4. MABTHERA [Suspect]
     Indication: DIFFUSE LARGE B-CELL LYMPHOMA
     Dosage: VOLUME OF LAST DRUG TAKEN:343.5ML, DOSE CONCENTRATION OF  LAST DRUG TAKEN:1.99MG/ML, DATE OF LAST DO
     Route: 042
     Dates: start: 20120410
  5. DOXORUBICIN HYDROCHLORIDE [Suspect]
     Indication: DIFFUSE LARGE B-CELL LYMPHOMA
     Dosage: DOSE OF LAST DRUG TAKEN:91MG, DATE OF LAST DOSE TAKEN PRIOR TO ONSET OF AE:13/JUN/2012
     Route: 042
     Dates: start: 20120410

REACTIONS (2)
  - STOMATITIS [None]
  - LIP ULCERATION [None]
